FAERS Safety Report 8147615-5 (Version None)
Quarter: 2012Q1

REPORT INFORMATION
  Report Type: 
  Country: None (occurrence: None)
  Receive Date: 20120218
  Receipt Date: 20110317
  Transmission Date: 20120608
  Serious: No
  Sender: FDA-Public Use
  Company Number: US-ALLERGAN-1015343US

PATIENT
  Age: 68 Year
  Sex: Female

DRUGS (3)
  1. BOTULINUM TOXIN TYPE A [Suspect]
     Indication: TORTICOLLIS
     Dosage: 200 UNITS, SINGLE Q 3 MONTHS
     Route: 030
     Dates: start: 20100916, end: 20100916
  2. SKELAXIN [Concomitant]
     Indication: PAIN
     Dosage: UNK
     Dates: start: 19980101
  3. VICODIN [Concomitant]
     Indication: PAIN
     Dosage: UNK

REACTIONS (12)
  - TONGUE DISORDER [None]
  - DIZZINESS [None]
  - NECK PAIN [None]
  - INJECTION SITE DISCOMFORT [None]
  - PRURITUS [None]
  - EYELID PTOSIS [None]
  - WHEEZING [None]
  - DRY MOUTH [None]
  - DYSPHAGIA [None]
  - MUSCLE SPASMS [None]
  - FATIGUE [None]
  - RASH ERYTHEMATOUS [None]
